FAERS Safety Report 10166703 (Version 1)
Quarter: 2014Q2

REPORT INFORMATION
  Report Type: Spontaneous
  Country: US (occurrence: US)
  Receive Date: 20140512
  Receipt Date: 20140512
  Transmission Date: 20141212
  Serious: Yes (Other)
  Sender: FDA-Public Use
  Company Number: US-BEH-2014042405

PATIENT
  Sex: Female

DRUGS (1)
  1. HIZENTRA [Suspect]
     Dosage: SUMMER 2011
     Route: 058

REACTIONS (4)
  - Malaise [Recovered/Resolved]
  - Poor quality drug administered [Recovered/Resolved]
  - No therapeutic response [Recovered/Resolved]
  - Incorrect product storage [Unknown]
